FAERS Safety Report 23905272 (Version 1)
Quarter: 2024Q2

REPORT INFORMATION
  Report Type: Spontaneous
  Country: GB (occurrence: GB)
  Receive Date: 20240527
  Receipt Date: 20240527
  Transmission Date: 20240716
  Serious: Yes (Other)
  Sender: FDA-Public Use
  Company Number: None

PATIENT
  Age: 33 Year
  Sex: Female
  Weight: 92 kg

DRUGS (8)
  1. DOXYCYCLINE [Suspect]
     Active Substance: DOXYCYCLINE\DOXYCYCLINE HYCLATE
     Route: 065
     Dates: start: 20240202
  2. ZELLETA [Concomitant]
     Dosage: ONE TABLET DAILY AT THE SAME TIME EACH DAY
     Dates: start: 20240130
  3. CLARITHROMYCIN [Concomitant]
     Active Substance: CLARITHROMYCIN
     Dosage: TAKE ONE TABLET TWICE A DAY FOR 5 DAYS, TO TREA...
     Dates: start: 20240206, end: 20240211
  4. CETIRIZINE [Concomitant]
     Active Substance: CETIRIZINE HYDROCHLORIDE
     Dosage: ONE TO BE TAKEN EACH DAY
     Dates: start: 20240130, end: 20240501
  5. ALBUTEROL [Concomitant]
     Active Substance: ALBUTEROL
     Dosage: AS DIRECTED
     Dates: start: 20240130
  6. CITALOPRAM [Concomitant]
     Active Substance: CITALOPRAM\CITALOPRAM HYDROBROMIDE
     Dates: start: 20240130
  7. FEXOFENADINE [Concomitant]
     Active Substance: FEXOFENADINE HYDROCHLORIDE
     Dates: start: 20240501
  8. BECLOMETHASONE\FORMOTEROL [Concomitant]
     Active Substance: BECLOMETHASONE\FORMOTEROL
     Route: 055
     Dates: start: 20240130

REACTIONS (1)
  - Hallucination [Recovered/Resolved]
